FAERS Safety Report 8827700 (Version 4)
Quarter: 2012Q4

REPORT INFORMATION
  Report Type: 
  Country: US (occurrence: US)
  Receive Date: 20121008
  Receipt Date: 20121228
  Transmission Date: 20130627
  Serious: No
  Sender: FDA-Public Use
  Company Number: US-PFIZER INC-2012244449

PATIENT
  Age: 66 Year
  Sex: Female
  Weight: 68.48 kg

DRUGS (6)
  1. SUTENT [Suspect]
     Indication: GASTROINTESTINAL STROMAL TUMOR
     Dosage: 37.5 mg (25mg and 12.5mg), 1x/day
     Route: 048
     Dates: start: 20120907
  2. SUTENT [Suspect]
     Dosage: 37.5 mg, (25mg and 12.5mg)
     Dates: start: 20121015
  3. SUTENT [Suspect]
     Dosage: Cycle 4, 25mg, on 21 days, off 7 days
     Dates: start: 20121212
  4. CALCIUM [Concomitant]
     Dosage: UNK
  5. IRON [Concomitant]
     Indication: ANEMIA
     Dosage: UNK
  6. OMEPRAZOLE [Concomitant]
     Indication: STOMACH ULCER
     Dosage: UNK

REACTIONS (20)
  - Dysgeusia [Not Recovered/Not Resolved]
  - Pain in extremity [Unknown]
  - Blister [Not Recovered/Not Resolved]
  - Oral pain [Unknown]
  - Speech disorder [Not Recovered/Not Resolved]
  - Tooth socket haemorrhage [Not Recovered/Not Resolved]
  - Tongue blistering [Recovered/Resolved]
  - Hyperaesthesia [Not Recovered/Not Resolved]
  - Lip pain [Not Recovered/Not Resolved]
  - Glossodynia [Not Recovered/Not Resolved]
  - White blood cell count decreased [Unknown]
  - Headache [Recovered/Resolved]
  - Gingival bleeding [Not Recovered/Not Resolved]
  - Palmar-plantar erythrodysaesthesia syndrome [Unknown]
  - Fatigue [Unknown]
  - Hyperkeratosis [Unknown]
  - Laceration [Recovered/Resolved]
  - Back pain [Unknown]
  - Arthropathy [Unknown]
  - Weight decreased [Unknown]
